FAERS Safety Report 8131749-5 (Version None)
Quarter: 2012Q1

REPORT INFORMATION
  Report Type: 
  Country: None (occurrence: None)
  Receive Date: 20120213
  Receipt Date: 20120203
  Transmission Date: 20120608
  Serious: Yes (Hospitalization, Other)
  Sender: FDA-Public Use
  Company Number: FR-JNJFOC-20120202394

PATIENT
  Age: 77 Year
  Sex: Female

DRUGS (2)
  1. ANTIHYPERTENSIVE [Concomitant]
  2. XARELTO [Suspect]
     Indication: KNEE ARTHROPLASTY
     Route: 048
     Dates: start: 20120109

REACTIONS (1)
  - PULMONARY EMBOLISM [None]
